FAERS Safety Report 4357911-5 (Version None)
Quarter: 2004Q2

REPORT INFORMATION
  Report Type: 
  Country: None (occurrence: None)
  Receive Date: 20040513
  Receipt Date: 20040513
  Transmission Date: 20050107
  Serious: No
  Sender: FDA-Public Use
  Company Number: None

PATIENT
  Sex: Male
  Weight: 45 kg

DRUGS (5)
  1. AMNESTEEM [Suspect]
     Indication: ACNE CYSTIC
     Dosage: 20 MG GT BID
     Dates: start: 20040506, end: 20040512
  2. OMEPRAZOLE [Concomitant]
  3. VALPROIC ACID [Concomitant]
  4. MILK OF MAGNESIA TAB [Concomitant]
  5. MULTIVITAMINS W/ MINERALS [Concomitant]

REACTIONS (1)
  - BRADYCARDIA [None]
